FAERS Safety Report 7300549-8 (Version None)
Quarter: 2011Q1

REPORT INFORMATION
  Report Type: 
  Country: None (occurrence: None)
  Receive Date: 20110218
  Receipt Date: 20110204
  Transmission Date: 20110831
  Serious: No
  Sender: FDA-Public Use
  Company Number: US-BIOGENIDEC-2010BI017000

PATIENT
  Age: 53 Year
  Sex: Female

DRUGS (1)
  1. TYSABRI [Suspect]
     Indication: MULTIPLE SCLEROSIS
     Route: 042
     Dates: start: 20100218

REACTIONS (8)
  - FEELING ABNORMAL [None]
  - DYSGRAPHIA [None]
  - URINARY TRACT INFECTION [None]
  - HAEMATOCHEZIA [None]
  - LOSS OF CONTROL OF LEGS [None]
  - RESTLESS LEGS SYNDROME [None]
  - HYPOAESTHESIA [None]
  - AGRAPHIA [None]
